FAERS Safety Report 9000870 (Version 1)
Quarter: 2013Q1

REPORT INFORMATION
  Report Type: Spontaneous
  Country: NL (occurrence: NL)
  Receive Date: 20130107
  Receipt Date: 20130107
  Transmission Date: 20140127
  Serious: Yes (Death, Hospitalization, Other)
  Sender: FDA-Public Use
  Company Number: PHHY2012NL040838

PATIENT
  Age: 72 Year
  Sex: Male
  Weight: 69 kg

DRUGS (12)
  1. ZOMETA [Suspect]
     Indication: METASTASES TO BONE
     Dosage: 5 MG, UNK
     Dates: start: 201204
  2. ZOMETA [Suspect]
     Dosage: 4 MG/100ML, 1X PER 28 DAYS
  3. ZOMETA [Suspect]
     Dosage: 4 MG/100ML, 1X PER 28 DAYS
     Dates: start: 20120411
  4. ZOMETA [Suspect]
     Dosage: 4 MG/100ML, 1X PER 28 DAYS
     Dates: start: 20120509
  5. ZOMETA [Suspect]
     Dosage: 4 MG/10 ML IN 20 MINUTES, 1X PER 28 DAYS
     Dates: start: 20120611
  6. ZOMETA [Suspect]
     Dosage: 4 MG/10 ML IN 20 MINUTES, 1X PER 28 DAYS
     Dates: start: 20121001
  7. ZOMETA [Suspect]
     Dosage: 4 MG/10 ML IN 20 MINUTES, 1X PER 28 DAYS
     Dates: start: 20121029
  8. PREDNISONE [Concomitant]
     Dosage: 5 MG, BID
  9. LEUPRORELIN [Concomitant]
     Dosage: 5 MG, 1X PER 3 MONTHS
  10. NEXIUM [Concomitant]
  11. DOCETAXEL [Concomitant]
     Dosage: 60 MG, ONCE PER 3 WEEKS
  12. ZYTIGA [Concomitant]

REACTIONS (9)
  - General physical health deterioration [Fatal]
  - Influenza like illness [Unknown]
  - Metastasis [Unknown]
  - Malaise [Unknown]
  - Bone pain [Not Recovered/Not Resolved]
  - Pain in extremity [Unknown]
  - Mobility decreased [Unknown]
  - Nausea [Not Recovered/Not Resolved]
  - Pelvic pain [Unknown]
